FAERS Safety Report 8756455 (Version 2)
Quarter: 2012Q4

REPORT INFORMATION
  Report Type: Spontaneous
  Country: GB (occurrence: None)
  Receive Date: 20120813
  Receipt Date: 20120831
  Transmission Date: 20130627
  Serious: Yes (Hospitalization, Other)
  Sender: FDA-Public Use
  Company Number: NSR_00609_2012

PATIENT
  Age: 85 Year
  Sex: Female

DRUGS (4)
  1. METOCLOPRAMIDE [Suspect]
     Indication: NAUSEA
     Dosage: [one IV bolus]
     Route: 040
  2. CEFTRIAXONE [Concomitant]
  3. METRONIDAZOLE [Concomitant]
  4. HEPARIN [Concomitant]

REACTIONS (9)
  - Dyspnoea [None]
  - Cyanosis [None]
  - Somnolence [None]
  - Tachycardia [None]
  - Methaemoglobinaemia [None]
  - Blood pressure systolic increased [None]
  - Red blood cell count decreased [None]
  - Haemoglobin decreased [None]
  - Haematocrit decreased [None]
